FAERS Safety Report 5317215-0 (Version None)
Quarter: 2007Q2

REPORT INFORMATION
  Report Type: 
  Country: None (occurrence: None)
  Receive Date: 20070504
  Receipt Date: 20070425
  Transmission Date: 20071010
  Serious: Yes (Hospitalization, Disabling, Other)
  Sender: FDA-Public Use
  Company Number: IE-PFIZER INC-2007030789

PATIENT
  Age: 72 Year
  Sex: Female
  Weight: 42 kg

DRUGS (5)
  1. LIPITOR [Suspect]
     Indication: BLOOD CHOLESTEROL INCREASED
     Route: 048
     Dates: start: 20050316
  2. DRUG, UNSPECIFIED [Concomitant]
  3. MICARDIS [Concomitant]
     Indication: BLOOD PRESSURE INCREASED
     Route: 048
  4. ZESTORETIC [Concomitant]
     Indication: BLOOD PRESSURE INCREASED
     Route: 048
     Dates: start: 20021001
  5. NEXIUM [Concomitant]
     Indication: GASTRITIS
     Route: 048
     Dates: start: 20020601

REACTIONS (3)
  - ASPARTATE AMINOTRANSFERASE INCREASED [None]
  - DERMATOMYOSITIS [None]
  - MYOSITIS [None]
